FAERS Safety Report 7820606-7 (Version None)
Quarter: 2011Q4

REPORT INFORMATION
  Report Type: 
  Country: None (occurrence: None)
  Receive Date: 20111018
  Receipt Date: 20111013
  Transmission Date: 20120403
  Serious: Yes (Other)
  Sender: FDA-Public Use
  Company Number: BR-ABBOTT-11P-020-0864311-00

PATIENT
  Sex: Female
  Weight: 63 kg

DRUGS (4)
  1. OMEPRAZOLE [Concomitant]
     Indication: GASTRITIS
     Route: 047
  2. HUMIRA [Suspect]
     Indication: CROHN'S DISEASE
     Dosage: INDUCTION DOSE
     Route: 058
     Dates: start: 20101028, end: 20101028
  3. HUMIRA [Suspect]
     Route: 058
  4. HUMIRA [Suspect]
     Route: 058
     Dates: start: 20101112, end: 20110601

REACTIONS (4)
  - ANAEMIA [None]
  - BARTHOLINITIS [None]
  - BARTHOLIN'S ABSCESS [None]
  - SUTURE RUPTURE [None]
